FAERS Safety Report 5742289-2 (Version None)
Quarter: 2008Q2

REPORT INFORMATION
  Report Type: 
  Country: None (occurrence: None)
  Receive Date: 20080514
  Receipt Date: 20080514
  Transmission Date: 20081010
  Serious: Yes (Other)
  Sender: FDA-Public Use
  Company Number: None

PATIENT
  Age: 6 Year
  Sex: Male
  Weight: 22.2263 kg

DRUGS (2)
  1. SINGULAIR [Suspect]
     Indication: ASTHMA
     Dosage: ONE CHEWABLE TABLET DAILY BUCCAL
     Route: 002
     Dates: start: 20080301, end: 20080401
  2. SINGULAIR [Suspect]
     Indication: MULTIPLE ALLERGIES
     Dosage: ONE CHEWABLE TABLET DAILY BUCCAL
     Route: 002
     Dates: start: 20080301, end: 20080401

REACTIONS (7)
  - AGGRESSION [None]
  - ANXIETY [None]
  - HALLUCINATION [None]
  - IRRITABILITY [None]
  - MIDDLE INSOMNIA [None]
  - NERVOUSNESS [None]
  - NIGHTMARE [None]
